FAERS Safety Report 8538724-7 (Version None)
Quarter: 2012Q3

REPORT INFORMATION
  Report Type: 
  Country: None (occurrence: None)
  Receive Date: 20120726
  Receipt Date: 20120713
  Transmission Date: 20120928
  Serious: Yes (Hospitalization, Other)
  Sender: FDA-Public Use
  Company Number: US-BAYER-2012-024490

PATIENT
  Age: 50 Year
  Sex: Female
  Weight: 79.365 kg

DRUGS (19)
  1. INDAPAMIDE [Concomitant]
     Indication: DIURETIC THERAPY
  2. PINDOLOL [Concomitant]
     Indication: BLOOD PRESSURE MANAGEMENT
     Dosage: 5 TO 10 MG, DAILY TO TWICW DAILY
     Route: 048
     Dates: start: 19830101
  3. LEVOTHYROXINE SODIUM [Concomitant]
  4. SYNTHROID [Concomitant]
     Indication: HYPOTHYROIDISM
  5. COUMADIN [Concomitant]
     Indication: DEEP VEIN THROMBOSIS
  6. INDAPAMIDE [Concomitant]
     Indication: BLOOD PRESSURE ABNORMAL
     Dosage: 2.5 MG, DAILY
     Route: 048
     Dates: start: 19830101
  7. COUMADIN [Concomitant]
     Indication: PULMONARY EMBOLISM
  8. CELEXA [Concomitant]
  9. SYNTHROID [Concomitant]
     Indication: POST PROCEDURAL HYPOTHYROIDISM
     Dosage: 100-150 MCG, DAILY
     Dates: start: 19830101
  10. PEPCID [Concomitant]
     Indication: DYSPEPSIA
     Dosage: 20 MG, DAILY TO TWICE DAILY
     Route: 048
     Dates: start: 20080517, end: 20080720
  11. LOVENOX [Concomitant]
     Indication: DEEP VEIN THROMBOSIS
  12. ASPIRIN [Concomitant]
  13. KLONOPIN [Concomitant]
  14. YAZ [Suspect]
     Indication: MENORRHAGIA
     Dosage: UNK
     Dates: start: 20070511, end: 20080517
  15. PRILOSEC [Concomitant]
  16. ORAL CONTRACEPTIVE NOS [Concomitant]
     Indication: UTERINE LEIOMYOMA
  17. PEPCID [Concomitant]
     Indication: GASTROOESOPHAGEAL REFLUX DISEASE
  18. ATIVAN [Concomitant]
     Indication: ANXIETY
  19. LOVENOX [Concomitant]
     Indication: PULMONARY EMBOLISM

REACTIONS (27)
  - CARDIAC DISORDER [None]
  - MUSCULOSKELETAL PAIN [None]
  - CHOLELITHIASIS [None]
  - LIBIDO DECREASED [None]
  - EMOTIONAL DISTRESS [None]
  - INSOMNIA [None]
  - DEEP VEIN THROMBOSIS [None]
  - PAIN [None]
  - ATRIAL FIBRILLATION [None]
  - CHEST PAIN [None]
  - DYSPNOEA [None]
  - UPPER RESPIRATORY TRACT INFECTION [None]
  - COUGH [None]
  - URINARY HESITATION [None]
  - DEPRESSION [None]
  - SINUS TACHYCARDIA [None]
  - PYREXIA [None]
  - BRONCHITIS [None]
  - PULMONARY EMBOLISM [None]
  - INJURY [None]
  - GENERAL PHYSICAL HEALTH DETERIORATION [None]
  - ANXIETY [None]
  - PULMONARY HYPERTENSION [None]
  - LUNG DISORDER [None]
  - DIZZINESS [None]
  - HYPERHIDROSIS [None]
  - NASAL CONGESTION [None]
